FAERS Safety Report 22199600 (Version 1)
Quarter: 2023Q2

REPORT INFORMATION
  Report Type: Report from Study
  Country: CO (occurrence: CO)
  Receive Date: 20230412
  Receipt Date: 20230412
  Transmission Date: 20230722
  Serious: Yes (Disabling)
  Sender: FDA-Public Use
  Company Number: CO-ABBVIE-4723538

PATIENT
  Sex: Female
  Weight: 59 kg

DRUGS (2)
  1. HUMIRA [Suspect]
     Active Substance: ADALIMUMAB
     Indication: Rheumatoid arthritis
     Route: 058
     Dates: start: 20140305
  2. HUMIRA [Suspect]
     Active Substance: ADALIMUMAB

REACTIONS (14)
  - Sleep deficit [Recovered/Resolved]
  - Headache [Recovered/Resolved]
  - Migraine [Recovered/Resolved]
  - Vomiting [Recovered/Resolved]
  - Migraine [Recovered/Resolved]
  - Nasal congestion [Recovered/Resolved]
  - Headache [Recovered/Resolved]
  - Pain [Recovered/Resolved]
  - Migraine [Recovered/Resolved]
  - Discouragement [Recovered/Resolved]
  - Headache [Recovered/Resolved]
  - Influenza like illness [Recovered/Resolved]
  - Vomiting [Recovered/Resolved]
  - Migraine [Recovered/Resolved]

NARRATIVE: CASE EVENT DATE: 20170101
